FAERS Safety Report 10269749 (Version 2)
Quarter: 2014Q3

REPORT INFORMATION
  Report Type: Spontaneous
  Country: GB (occurrence: None)
  Receive Date: 20140625
  Receipt Date: 20140814
  Transmission Date: 20150326
  Serious: Yes (Hospitalization)
  Sender: FDA-Public Use
  Company Number: AUR-APL-2014-06699

PATIENT
  Age: 67 Year
  Sex: Male

DRUGS (6)
  1. CLOPIDOGREL [Suspect]
     Active Substance: CLOPIDOGREL BISULFATE
     Indication: ATRIAL FIBRILLATION
     Dates: start: 20140303, end: 20140601
  2. BISOPROLOL (BISOPROLOL) [Concomitant]
     Active Substance: BISOPROLOL
  3. ASPIRIN (ACETYLSALICYCLIC ACID) [Concomitant]
     Active Substance: ASPIRIN
  4. RAMIPRIL (RAMIPRIL) [Concomitant]
     Active Substance: RAMIPRIL
  5. SIMVASTATIN (SIMVASTATIN) [Concomitant]
     Active Substance: SIMVASTATIN
  6. GLYCERYL TRINITRATE (GLYCERYL TRINITRATE) [Concomitant]

REACTIONS (3)
  - Gastric ulcer [None]
  - Rectal haemorrhage [None]
  - Melaena [None]

NARRATIVE: CASE EVENT DATE: 20140602
